FAERS Safety Report 9804396 (Version 2)
Quarter: 2014Q1

REPORT INFORMATION
  Report Type: Spontaneous
  Country: US (occurrence: US)
  Receive Date: 20140108
  Receipt Date: 20140108
  Transmission Date: 20141002
  Serious: Yes (Other)
  Sender: FDA-Public Use
  Company Number: US-TAKEDA-TPA2013A05261

PATIENT
  Sex: 0

DRUGS (7)
  1. ACTOS [Suspect]
     Indication: TYPE 2 DIABETES MELLITUS
     Dosage: 15 MG, UNK
     Dates: start: 20090813, end: 20100219
  2. ACTOS [Suspect]
     Dosage: 30 MG, UNK
     Dates: start: 20100219, end: 20100708
  3. METFORMIN [Concomitant]
     Dosage: 500 MG, UNK
     Dates: start: 20090813, end: 20121009
  4. JANUVIA [Concomitant]
     Dosage: UNK
     Dates: start: 2009
  5. JANUVIA [Concomitant]
     Dosage: UNK
     Dates: start: 2012
  6. JANUMET [Concomitant]
     Indication: DIABETES MELLITUS
     Dosage: 50/500 MG
     Dates: start: 20090911, end: 20120912
  7. JANUMET [Concomitant]
     Dosage: 50/500 MG
     Dates: start: 2013

REACTIONS (1)
  - Bladder mass [Unknown]
